FAERS Safety Report 22087666 (Version 2)
Quarter: 2023Q4

REPORT INFORMATION
  Report Type: Report from Study
  Country: CA (occurrence: CA)
  Receive Date: 20230313
  Receipt Date: 20231207
  Transmission Date: 20240110
  Serious: Yes (Other)
  Sender: FDA-Public Use
  Company Number: CA-ABBVIE-4335990

PATIENT
  Sex: Female

DRUGS (2)
  1. HUMIRA [Suspect]
     Active Substance: ADALIMUMAB
     Indication: Crohn^s disease
     Dosage: FORM STRENGTH: 40 MG
     Route: 058
     Dates: start: 20170523
  2. AMOXICILLIN\CLAVULANATE POTASSIUM [Concomitant]
     Active Substance: AMOXICILLIN\CLAVULANATE POTASSIUM
     Indication: Product used for unknown indication
     Dosage: BID

REACTIONS (9)
  - Ileocaecal resection [Unknown]
  - Anal fistula [Unknown]
  - Pelvic abscess [Unknown]
  - Colonic fistula [Unknown]
  - Stoma site reaction [Recovering/Resolving]
  - Ovarian abscess [Unknown]
  - Stoma site infection [Unknown]
  - Stoma site discharge [Unknown]
  - Pyoderma gangrenosum [Unknown]
